FAERS Safety Report 10231116 (Version 2)
Quarter: 2014Q2

REPORT INFORMATION
  Report Type: Spontaneous
  Country: JP (occurrence: JP)
  Receive Date: 20140611
  Receipt Date: 20140618
  Transmission Date: 20141212
  Serious: Yes (Other)
  Sender: FDA-Public Use
  Company Number: JP-PFIZER INC-2014157618

PATIENT
  Sex: Male
  Weight: .94 kg

DRUGS (3)
  1. DALTEPARIN SODIUM [Suspect]
     Dosage: 4800 IU, 1X/DAY
  2. HEPARIN SODIUM [Suspect]
     Dosage: 15000 IU, DAILY
  3. PREDNISOLON [Suspect]
     Route: 048

REACTIONS (3)
  - Exposure during pregnancy [Unknown]
  - Gastrointestinal perforation [Unknown]
  - Foetal growth restriction [Unknown]
